FAERS Safety Report 13306513 (Version 3)
Quarter: 2018Q2

REPORT INFORMATION
  Report Type: Spontaneous
  Country: BR (occurrence: BR)
  Receive Date: 20170308
  Receipt Date: 20180413
  Transmission Date: 20180711
  Serious: Yes (Hospitalization)
  Sender: FDA-Public Use
  Company Number: BR-ROCHE-1901471

PATIENT
  Age: 64 Year
  Sex: Male

DRUGS (4)
  1. ZELBORAF [Suspect]
     Active Substance: VEMURAFENIB
     Indication: METASTATIC MALIGNANT MELANOMA
     Dosage: D1-21 EVERY 28 DAYS
     Route: 065
     Dates: start: 20170118
  2. COTELLIC [Suspect]
     Active Substance: COBIMETINIB
     Indication: METASTATIC MALIGNANT MELANOMA
     Dosage: D1-21 EVERY 28 DAYS
     Route: 065
     Dates: start: 20170118
  3. COTELLIC [Suspect]
     Active Substance: COBIMETINIB
     Dosage: REDUCED DOSE
     Route: 065
     Dates: start: 201702
  4. ZELBORAF [Suspect]
     Active Substance: VEMURAFENIB
     Dosage: REDUCED DOSE
     Route: 065
     Dates: start: 201702

REACTIONS (2)
  - Sepsis [Unknown]
  - Rash [Recovering/Resolving]

NARRATIVE: CASE EVENT DATE: 20170127
